FAERS Safety Report 21111211 (Version 1)
Quarter: 2022Q3

REPORT INFORMATION
  Report Type: Spontaneous
  Country: ES (occurrence: ES)
  Receive Date: 20220721
  Receipt Date: 20220721
  Transmission Date: 20221027
  Serious: Yes (Hospitalization)
  Sender: FDA-Public Use
  Company Number: ES-KRKA-ES2022K07133LIT

PATIENT
  Age: 11 Year
  Sex: Male

DRUGS (2)
  1. RISPERIDONE [Suspect]
     Active Substance: RISPERIDONE
     Indication: Product used for unknown indication
     Dosage: 2 MILLIGRAM
     Route: 065
  2. RISPERIDONE [Suspect]
     Active Substance: RISPERIDONE
     Dosage: UNK
     Route: 065

REACTIONS (5)
  - Syncope [Unknown]
  - Intentional overdose [Unknown]
  - Condition aggravated [Recovering/Resolving]
  - Long QT syndrome [Recovering/Resolving]
  - Electrocardiogram PR prolongation [Recovering/Resolving]
